FAERS Safety Report 6523534-2 (Version None)
Quarter: 2009Q4

REPORT INFORMATION
  Report Type: 
  Country: None (occurrence: None)
  Receive Date: 20091231
  Receipt Date: 20091221
  Transmission Date: 20100525
  Serious: Yes (Other)
  Sender: FDA-Public Use
  Company Number: PHHY2009US57700

PATIENT
  Sex: Female

DRUGS (4)
  1. RECLAST [Suspect]
     Dosage: UNK
     Dates: start: 20080515
  2. RECLAST [Suspect]
     Dosage: 5 MG, UNK
     Dates: start: 20090515
  3. CALCIUM [Concomitant]
  4. VITAMIN D [Concomitant]

REACTIONS (4)
  - MYALGIA [None]
  - PAIN [None]
  - PROCEDURAL PAIN [None]
  - SHOULDER ARTHROPLASTY [None]
